FAERS Safety Report 9831584 (Version 2)
Quarter: 2014Q2

REPORT INFORMATION
  Report Type: Spontaneous
  Country: US (occurrence: US)
  Receive Date: 20140121
  Receipt Date: 20140422
  Transmission Date: 20141212
  Serious: No
  Sender: FDA-Public Use
  Company Number: US-JNJFOC-20140109007

PATIENT
  Age: 67 Year
  Sex: Female
  Weight: 65.32 kg

DRUGS (9)
  1. SANDOZ FENTANYL TRANSDERMAL SYSTEM [Suspect]
     Indication: PAIN
     Route: 062
     Dates: start: 20130910, end: 20140110
  2. SANDOZ FENTANYL TRANSDERMAL SYSTEM [Suspect]
     Indication: PAIN
     Route: 062
     Dates: start: 2013, end: 20130910
  3. METFORMIN [Concomitant]
     Indication: TYPE 2 DIABETES MELLITUS
     Dosage: 500 MG TABLET
     Route: 048
     Dates: start: 20131223
  4. GLIPIZIDE [Concomitant]
     Indication: TYPE 2 DIABETES MELLITUS
     Dosage: STRENGTH 10 MG
     Route: 048
     Dates: start: 201305
  5. LYRICA [Concomitant]
     Indication: PAIN IN EXTREMITY
     Route: 048
     Dates: start: 201305
  6. GABAPENTIN [Concomitant]
     Indication: TYPE 2 DIABETES MELLITUS
     Dosage: STRENGTH 300 MG
     Route: 048
     Dates: start: 201305
  7. PRAVASTATIN [Concomitant]
     Indication: BLOOD CHOLESTEROL INCREASED
     Route: 048
     Dates: start: 20131230
  8. LISINOPRIL [Concomitant]
     Indication: HYPERTENSION
     Dosage: HALF OF 10 MG TABLET
     Route: 048
     Dates: start: 201305
  9. SENNA [Concomitant]
     Indication: ABNORMAL FAECES
     Route: 048
     Dates: start: 201311

REACTIONS (5)
  - Drug effect increased [Recovered/Resolved]
  - Drug dose omission [Not Recovered/Not Resolved]
  - Throat tightness [Recovered/Resolved]
  - Dyspnoea [Recovered/Resolved]
  - Product packaging quantity issue [Unknown]
